FAERS Safety Report 15504599 (Version 1)
Quarter: 2018Q4

REPORT INFORMATION
  Report Type: Spontaneous
  Country: US (occurrence: US)
  Receive Date: 20181016
  Receipt Date: 20181016
  Transmission Date: 20190205
  Serious: Yes (Hospitalization)
  Sender: FDA-Public Use
  Company Number: None

PATIENT
  Age: 62 Year
  Sex: Male

DRUGS (2)
  1. SIMPONI [Suspect]
     Active Substance: GOLIMUMAB
     Indication: ANKYLOSING SPONDYLITIS
     Dosage: ?          OTHER FREQUENCY:EVERY MONTH;?
     Route: 058
     Dates: start: 20180416
  2. DESVENLAFAXINE. [Concomitant]
     Active Substance: DESVENLAFAXINE

REACTIONS (2)
  - Atrial fibrillation [None]
  - Respiratory tract infection [None]

NARRATIVE: CASE EVENT DATE: 20180824
